FAERS Safety Report 4780529-7 (Version None)
Quarter: 2005Q3

REPORT INFORMATION
  Report Type: 
  Country: None (occurrence: None)
  Receive Date: 20050926
  Receipt Date: 20050908
  Transmission Date: 20060218
  Serious: Yes (Hospitalization)
  Sender: FDA-Public Use
  Company Number: 2005BI008034

PATIENT
  Age: 28 Year
  Sex: Female

DRUGS (1)
  1. NATALIZUMAB [Suspect]
     Indication: MULTIPLE SCLEROSIS
     Dosage: 300 MG;QW; IM
     Route: 042
     Dates: start: 20050201, end: 20050201

REACTIONS (3)
  - DIPLOPIA [None]
  - HEMIPARESIS [None]
  - MULTIPLE SCLEROSIS RELAPSE [None]
